FAERS Safety Report 5932118-6 (Version None)
Quarter: 2008Q4

REPORT INFORMATION
  Report Type: 
  Country: None (occurrence: None)
  Receive Date: 20081027
  Receipt Date: 20081027
  Transmission Date: 20090506
  Serious: Yes (Life-Threatening, Hospitalization)
  Sender: FDA-Public Use
  Company Number: None

PATIENT
  Age: 49 Month
  Sex: Female
  Weight: 78.4723 kg

DRUGS (2)
  1. FENTANYL CITRATE [Suspect]
     Indication: BACK PAIN
     Dates: start: 20081004, end: 20081007
  2. FENTANYL CITRATE [Suspect]
     Indication: NEPHROLITHIASIS
     Dates: start: 20081004, end: 20081007

REACTIONS (3)
  - MEDICATION ERROR [None]
  - PRODUCT QUALITY ISSUE [None]
  - RESPIRATORY RATE DECREASED [None]
